FAERS Safety Report 24911243 (Version 1)
Quarter: 2025Q1

REPORT INFORMATION
  Report Type: Spontaneous
  Country: US (occurrence: None)
  Receive Date: 20250131
  Receipt Date: 20250131
  Transmission Date: 20250408
  Serious: Yes (Hospitalization)
  Sender: FDA-CTU
  Company Number: None

PATIENT
  Age: 75 Year
  Sex: Female

DRUGS (1)
  1. POMALYST [Suspect]
     Active Substance: POMALIDOMIDE
     Indication: Plasma cell myeloma
     Route: 048

REACTIONS (5)
  - Atypical pneumonia [None]
  - Cardiac infection [None]
  - Blood potassium decreased [None]
  - Blood magnesium decreased [None]
  - Therapy interrupted [None]

NARRATIVE: CASE EVENT DATE: 20250117
